FAERS Safety Report 10031664 (Version 2)
Quarter: 2014Q2

REPORT INFORMATION
  Report Type: Spontaneous
  Country: US (occurrence: US)
  Receive Date: 20140324
  Receipt Date: 20140404
  Transmission Date: 20141212
  Serious: No
  Sender: FDA-Public Use
  Company Number: US-PFIZER INC-2014082261

PATIENT
  Sex: Male

DRUGS (4)
  1. FLAGYL [Suspect]
     Dosage: UNK
  2. METHADONE [Suspect]
     Dosage: UNK
  3. LASIX [Suspect]
     Dosage: UNK
  4. TORADOL [Suspect]
     Dosage: UNK

REACTIONS (2)
  - Drug hypersensitivity [Unknown]
  - Rash [Unknown]
